FAERS Safety Report 5524874-6 (Version None)
Quarter: 2007Q4

REPORT INFORMATION
  Report Type: 
  Country: None (occurrence: None)
  Receive Date: 20071119
  Receipt Date: 20071105
  Transmission Date: 20080405
  Serious: Yes (Hospitalization)
  Sender: FDA-Public Use
  Company Number: 2007BI015849

PATIENT
  Age: 54 Year
  Sex: Female

DRUGS (1)
  1. NATALIZUMAB (NATALIZUMAB) [Suspect]
     Indication: DRUG USE FOR UNKNOWN INDICATION
     Dosage: 300 MG; QM; IV
     Route: 042
     Dates: start: 20070316

REACTIONS (3)
  - CONJUNCTIVITIS [None]
  - DYSPNOEA EXERTIONAL [None]
  - GASTRITIS [None]
